FAERS Safety Report 8788598 (Version 2)
Quarter: 2012Q4

REPORT INFORMATION
  Report Type: 
  Country: US (occurrence: US)
  Receive Date: 20120914
  Receipt Date: 20121217
  Transmission Date: 20130627
  Serious: No
  Sender: FDA-Public Use
  Company Number: US-VERTEX PHARMACEUTICAL INC.-AE-2012-010842

PATIENT
  Age: 53 None
  Sex: Male
  Weight: 114 kg

DRUGS (6)
  1. VX-950 (TELAPREVIR) [Suspect]
     Indication: HEPATITIS C
     Dosage: 750 mg, tid
     Route: 048
     Dates: start: 20120721
  2. RIBAVIRIN [Suspect]
     Indication: HEPATITIS C
     Dosage: 200 mg, UNK
     Route: 048
     Dates: start: 20120721
  3. PEGASYS [Suspect]
     Indication: HEPATITIS C
     Dosage: 180 ?g, UNK
     Route: 058
     Dates: start: 20120721
  4. IBUPROFEN [Concomitant]
     Dosage: 200 mg, UNK
  5. ALEVE [Concomitant]
     Dosage: 220 mg, UNK
  6. DESOXIMETASONE [Concomitant]
     Dosage: 0.05 %, UNK

REACTIONS (9)
  - Skin ulcer [Not Recovered/Not Resolved]
  - Vision blurred [Recovered/Resolved]
  - Mood swings [Not Recovered/Not Resolved]
  - Ocular hyperaemia [Not Recovered/Not Resolved]
  - Eye pruritus [Not Recovered/Not Resolved]
  - Anger [Recovered/Resolved]
  - Irritability [Not Recovered/Not Resolved]
  - Rash pruritic [Recovered/Resolved]
  - Blister [Not Recovered/Not Resolved]
